FAERS Safety Report 7642352-5 (Version None)
Quarter: 2011Q3

REPORT INFORMATION
  Report Type: 
  Country: None (occurrence: None)
  Receive Date: 20110728
  Receipt Date: 20110627
  Transmission Date: 20111222
  Serious: No
  Sender: FDA-Public Use
  Company Number: US-BAYER-2011-057878

PATIENT
  Age: 39 Year

DRUGS (2)
  1. ALEVE (CAPLET) [Suspect]
     Indication: ARTHRITIS
     Dosage: UNK
  2. GLUCOSAMINE SULFATE [Concomitant]
     Dosage: UNK

REACTIONS (2)
  - PAIN [None]
  - NO ADVERSE EVENT [None]
